FAERS Safety Report 9397942 (Version 2)
Quarter: 2013Q3

REPORT INFORMATION
  Report Type: Spontaneous
  Country: CA (occurrence: None)
  Receive Date: 20130709
  Receipt Date: 20130717
  Transmission Date: 20140515
  Serious: Yes (Hospitalization)
  Sender: FDA-Public Use
  Company Number: 2013-1106

PATIENT
  Age: 64 Year
  Sex: Male

DRUGS (2)
  1. CARFILZOMIB [Suspect]
     Indication: PLASMA CELL MYELOMA
     Dosage: (43, DAYS 1, 2)
     Route: 042
     Dates: start: 20130605, end: 20130606
  2. DEXAMETHASONE [Suspect]
     Indication: PLASMA CELL MYELOMA

REACTIONS (4)
  - Performance status decreased [None]
  - Spinal cord compression [None]
  - Back pain [None]
  - Weight bearing difficulty [None]
